FAERS Safety Report 10682122 (Version 2)
Quarter: 2014Q4

REPORT INFORMATION
  Report Type: Spontaneous
  Country: BR (occurrence: BR)
  Receive Date: 20141230
  Receipt Date: 20141230
  Transmission Date: 20150529
  Serious: Yes (Other)
  Sender: FDA-Public Use
  Company Number: BR-SA-2014SA173373

PATIENT
  Age: 52 Year
  Sex: Male
  Weight: 102 kg

DRUGS (18)
  1. CLIKSTAR [Concomitant]
     Active Substance: CLIKSTAR
     Indication: DEVICE THERAPY
     Dates: start: 2009
  2. AMLODIPINE [Concomitant]
     Active Substance: AMLODIPINE BESYLATE
     Indication: CARDIAC DISORDER
     Dates: start: 2000
  3. FUROSEMIDE. [Concomitant]
     Active Substance: FUROSEMIDE
     Indication: DIURETIC THERAPY
     Dates: start: 2000
  4. LIPANON [Suspect]
     Active Substance: FENOFIBRATE
     Indication: BLOOD CHOLESTEROL ABNORMAL
     Dosage: 250 MG
     Route: 065
  5. LIPANON [Concomitant]
     Active Substance: FENOFIBRATE
     Indication: BLOOD CHOLESTEROL
     Dates: start: 201411
  6. LOSARTAN [Concomitant]
     Active Substance: LOSARTAN
     Indication: CARDIAC DISORDER
     Dates: start: 2000
  7. TRADJENTA [Concomitant]
     Active Substance: LINAGLIPTIN
     Indication: TYPE 2 DIABETES MELLITUS
     Dates: start: 2002
  8. LANTUS [Suspect]
     Active Substance: INSULIN GLARGINE
     Indication: TYPE 2 DIABETES MELLITUS
     Dosage: 50-75 IU
     Route: 058
  9. ASPIRIN. [Concomitant]
     Active Substance: ASPIRIN
     Indication: CARDIAC DISORDER
     Dates: start: 2008
  10. LANTUS [Suspect]
     Active Substance: INSULIN GLARGINE
     Indication: TYPE 2 DIABETES MELLITUS
     Dosage: DOSE: 65IU IN MORNING AND 45IU AT NIGHT
     Route: 058
     Dates: start: 2009
  11. LANTUS [Suspect]
     Active Substance: INSULIN GLARGINE
     Indication: TYPE 2 DIABETES MELLITUS
     Route: 058
  12. ATORVASTATIN [Concomitant]
     Active Substance: ATORVASTATIN
     Indication: BLOOD TRIGLYCERIDES
  13. SELOKEN [Concomitant]
     Active Substance: METOPROLOL
     Indication: CARDIAC DISORDER
     Dates: start: 2008
  14. ATORVASTATIN [Suspect]
     Active Substance: ATORVASTATIN
     Indication: BLOOD CHOLESTEROL ABNORMAL
     Dosage: 10 MG
     Route: 065
  15. INSULIN LISPRO [Concomitant]
     Active Substance: INSULIN LISPRO
     Indication: TYPE 2 DIABETES MELLITUS
     Dosage: 2 IU^S EVERY 100MG/DL CHANGED UPTO GLYCEMIC VALUE OF 100MG / DL
     Dates: start: 2009
  16. LANTUS [Suspect]
     Active Substance: INSULIN GLARGINE
     Indication: TYPE 2 DIABETES MELLITUS
     Dosage: 50-75 IU
     Route: 058
  17. LEVOTHYROXINE SODIUM. [Concomitant]
     Active Substance: LEVOTHYROXINE SODIUM
     Indication: THYROID DISORDER
     Dates: start: 2008
  18. FORXIGA [Concomitant]
     Active Substance: DAPAGLIFLOZIN
     Indication: TYPE 2 DIABETES MELLITUS
     Dates: start: 2001

REACTIONS (19)
  - Off label use [Unknown]
  - Abnormal sensation in eye [Unknown]
  - Stress [Unknown]
  - Low density lipoprotein [Unknown]
  - Weight decreased [Unknown]
  - Renal failure [Unknown]
  - Blood glucose increased [Not Recovered/Not Resolved]
  - Visual impairment [Not Recovered/Not Resolved]
  - Hepatic steatosis [Unknown]
  - Oral discomfort [Unknown]
  - Bone loss [Unknown]
  - Paraesthesia [Not Recovered/Not Resolved]
  - Sensory loss [Not Recovered/Not Resolved]
  - Muscle spasms [Not Recovered/Not Resolved]
  - Paraesthesia [Unknown]
  - Mastication disorder [Unknown]
  - Blood triglycerides increased [Unknown]
  - Tooth infection [Unknown]
  - Jaw disorder [Unknown]

NARRATIVE: CASE EVENT DATE: 2009
